FAERS Safety Report 6542660-5 (Version None)
Quarter: 2010Q1

REPORT INFORMATION
  Report Type: 
  Country: None (occurrence: None)
  Receive Date: 20100119
  Receipt Date: 20100112
  Transmission Date: 20100710
  Serious: Yes (Death)
  Sender: FDA-Public Use
  Company Number: US-GILEAD-2010-0026434

PATIENT
  Sex: Male
  Weight: 77.7 kg

DRUGS (22)
  1. LETAIRIS [Suspect]
     Indication: PULMONARY ARTERIAL HYPERTENSION
     Route: 048
     Dates: start: 20090806, end: 20091225
  2. REVATIO [Concomitant]
  3. HYDROCHLOROTHIAZIDE [Concomitant]
  4. FOSINOPRIL SODIUM [Concomitant]
  5. ALBUTEROL [Concomitant]
  6. FLUTICASONE [Concomitant]
  7. ADVAIR DISKUS 100/50 [Concomitant]
  8. COMBIVENT [Concomitant]
  9. ZYRTEC [Concomitant]
  10. DETROL LA [Concomitant]
  11. CARBAMAZEPINE [Concomitant]
  12. SIMVASTATIN [Concomitant]
  13. ASPIRIN [Concomitant]
  14. NEXIUM [Concomitant]
  15. MECLIZINE [Concomitant]
  16. FELODIPINE [Concomitant]
  17. PREDNISONE [Concomitant]
  18. ALEVE (CAPLET) [Concomitant]
  19. MUCINEX [Concomitant]
  20. MULTI-VITAMIN [Concomitant]
  21. GLUCOSAMINE [Concomitant]
  22. MELATONIN [Concomitant]

REACTIONS (1)
  - DEATH [None]
